FAERS Safety Report 17889499 (Version 1)
Quarter: 2020Q2

REPORT INFORMATION
  Report Type: Report from Study
  Country: CA (occurrence: CA)
  Receive Date: 20200612
  Receipt Date: 20200612
  Transmission Date: 20200714
  Serious: Yes (Other)
  Sender: FDA-Public Use
  Company Number: CA-TEVA-2020-CA-1247285

PATIENT
  Age: 24 Year
  Sex: Female

DRUGS (12)
  1. COSENTYX [Suspect]
     Active Substance: SECUKINUMAB
     Indication: ANKYLOSING SPONDYLITIS
     Route: 058
  2. HUMIRA [Concomitant]
     Active Substance: ADALIMUMAB
     Route: 058
  3. METHOTREXATE. [Suspect]
     Active Substance: METHOTREXATE
     Indication: PRODUCT USED FOR UNKNOWN INDICATION
     Route: 058
  4. STELARA [Concomitant]
     Active Substance: USTEKINUMAB
     Route: 058
  5. CIMZIA [Concomitant]
     Active Substance: CERTOLIZUMAB PEGOL
     Route: 058
  6. PNEUMOCOCCAL VACCINE POLYVALENT NOS [Concomitant]
     Active Substance: PNEUMOCOCCAL VACCINE POLYVALENT
  7. ENBREL [Concomitant]
     Active Substance: ETANERCEPT
     Route: 058
  8. SIMPONI [Concomitant]
     Active Substance: GOLIMUMAB
     Route: 058
  9. NAPROXEN. [Concomitant]
     Active Substance: NAPROXEN
     Route: 048
  10. REMICADE [Concomitant]
     Active Substance: INFLIXIMAB
     Route: 042
  11. CELEBREX [Concomitant]
     Active Substance: CELECOXIB
     Dosage: 400 MILLIGRAM DAILY;
     Route: 048
  12. SULFASALAZINE. [Concomitant]
     Active Substance: SULFASALAZINE
     Dosage: 500 MILLIGRAM DAILY;
     Route: 048

REACTIONS (13)
  - Cough [Not Recovered/Not Resolved]
  - Injection site reaction [Not Recovered/Not Resolved]
  - Cellulitis [Not Recovered/Not Resolved]
  - Injection site erythema [Not Recovered/Not Resolved]
  - Neck pain [Not Recovered/Not Resolved]
  - Pain in extremity [Not Recovered/Not Resolved]
  - Pyrexia [Not Recovered/Not Resolved]
  - Erythema [Not Recovered/Not Resolved]
  - Abdominal pain upper [Not Recovered/Not Resolved]
  - Injection site bruising [Not Recovered/Not Resolved]
  - Injection site macule [Not Recovered/Not Resolved]
  - Injection site pruritus [Not Recovered/Not Resolved]
  - Urine odour abnormal [Not Recovered/Not Resolved]
